FAERS Safety Report 12078500 (Version 2)
Quarter: 2018Q1

REPORT INFORMATION
  Report Type: Report from Study
  Country: US (occurrence: US)
  Receive Date: 20160216
  Receipt Date: 20180326
  Transmission Date: 20180508
  Serious: Yes (Other)
  Sender: FDA-Public Use
  Company Number: US-AMGEN-USASL2016017362

PATIENT
  Age: 83 Year
  Sex: Male
  Weight: 70.75 kg

DRUGS (10)
  1. PROCRIT [Suspect]
     Active Substance: ERYTHROPOIETIN
     Dosage: 40000 UNIT/ML, Q2WK
     Route: 065
  2. ASPIRIN. [Concomitant]
     Active Substance: ASPIRIN
     Dosage: UNK UNK, QD (1 EVERY MORNING)
     Route: 048
  3. NIFEDIPINE. [Concomitant]
     Active Substance: NIFEDIPINE
     Dosage: UNK UNK, BID
     Route: 048
  4. ALLOPURINOL. [Concomitant]
     Active Substance: ALLOPURINOL
     Dosage: UNK UNK, QD (1 EVERY MORNING)
     Route: 048
  5. HYDRALAZINE HCL [Concomitant]
     Active Substance: HYDRALAZINE HYDROCHLORIDE
     Dosage: UNK UNK, TID
     Route: 048
  6. LACTULOSE. [Concomitant]
     Active Substance: LACTULOSE
     Indication: CONSTIPATION
     Dosage: UNK UNK, QD (ORAL SOLUTION)
     Route: 048
  7. MENTAL ACUITY [Concomitant]
     Dosage: UNK UNK, QD (EVERY MORNING)
  8. PROCRIT [Suspect]
     Active Substance: ERYTHROPOIETIN
     Indication: NEPHROGENIC ANAEMIA
     Dosage: UNK UNK, QMO
     Route: 065
  9. IRON [Concomitant]
     Active Substance: IRON
     Dosage: UNK UNK, QD (65 FE)
     Route: 048
  10. VALSARTAN. [Concomitant]
     Active Substance: VALSARTAN
     Dosage: UNK UNK, QD (EVERY MORNING)

REACTIONS (13)
  - Weight increased [Unknown]
  - Nocturia [Unknown]
  - Oedema [Unknown]
  - Secondary hyperthyroidism [Unknown]
  - Dry skin [Unknown]
  - Swelling [Unknown]
  - Faeces hard [Unknown]
  - Constipation [Unknown]
  - Gouty arthritis [Unknown]
  - Hyperkalaemia [Unknown]
  - Metabolic acidosis [Unknown]
  - Pain in extremity [Unknown]
  - Skin fissures [Unknown]

NARRATIVE: CASE EVENT DATE: 201801
